FAERS Safety Report 21381883 (Version 2)
Quarter: 2023Q2

REPORT INFORMATION
  Report Type: Spontaneous
  Country: US (occurrence: US)
  Receive Date: 20220927
  Receipt Date: 20230404
  Transmission Date: 20230722
  Serious: Yes (Death, Hospitalization)
  Sender: FDA-Public Use
  Company Number: US-PFIZER INC-202101182101

PATIENT
  Age: 95 Year
  Sex: Male
  Weight: 63.5 kg

DRUGS (1)
  1. VYNDAMAX [Suspect]
     Active Substance: TAFAMIDIS
     Indication: Cardiac amyloidosis
     Dosage: 61 MG, DAILY
     Dates: start: 2020, end: 2023

REACTIONS (6)
  - Cardiac arrest [Fatal]
  - Dehydration [Fatal]
  - Blood sodium increased [Fatal]
  - Infection [Unknown]
  - Illness [Recovered/Resolved]
  - Malnutrition [Unknown]

NARRATIVE: CASE EVENT DATE: 20230327
